FAERS Safety Report 21872865 (Version 1)
Quarter: 2023Q1

REPORT INFORMATION
  Report Type: Spontaneous
  Country: None (occurrence: JP)
  Receive Date: 20230117
  Receipt Date: 20230117
  Transmission Date: 20230417
  Serious: Yes (Hospitalization, Other)
  Sender: FDA-Public Use
  Company Number: JP-Breckenridge Pharmaceutical, Inc.-2136780

PATIENT
  Age: 54 Year
  Sex: Male

DRUGS (28)
  1. LEVETIRACETAM [Suspect]
     Active Substance: LEVETIRACETAM
     Indication: Epilepsy
     Route: 048
     Dates: start: 20130402, end: 20221109
  2. TRANILAST [Concomitant]
     Active Substance: TRANILAST
  3. TEPRENONE [Concomitant]
     Active Substance: TEPRENONE
  4. URSODIOL [Concomitant]
     Active Substance: URSODIOL
  5. NIFEDIPINE [Concomitant]
     Active Substance: NIFEDIPINE
  6. ATORVASTATIN CALCIUM [Concomitant]
     Active Substance: ATORVASTATIN CALCIUM
  7. NEUROTROPIN (AN EXTRACT OBTAINED FROM INFLAMMATORY RABBIT SKIN INOCULA [Concomitant]
  8. DIAZEPAM [Concomitant]
     Active Substance: DIAZEPAM
  9. ACETAMINOPHEN [Concomitant]
     Active Substance: ACETAMINOPHEN
     Route: 048
  10. PREDNISOLONE [Concomitant]
     Active Substance: PREDNISOLONE
     Route: 048
  11. POTASSIUM CHLORIDE [Concomitant]
     Active Substance: POTASSIUM CHLORIDE
     Route: 048
  12. RISEDRONATE SODIUM HEMI-PENTAHYDRATE [Concomitant]
     Active Substance: RISEDRONATE SODIUM HEMI-PENTAHYDRATE
     Route: 048
  13. ALFACALCIDOL [Concomitant]
     Active Substance: ALFACALCIDOL
  14. CERNITIN POLLEN EXTRACT [Concomitant]
  15. TAMSULOSIN HYDROCHLORIDE [Concomitant]
     Active Substance: TAMSULOSIN HYDROCHLORIDE
     Route: 048
  16. POTASSIUM CITRATE/SODIUM CITRATE HYDRATE [Concomitant]
     Route: 048
  17. CARBOCYSTEINE [Concomitant]
     Active Substance: CARBOCYSTEINE
     Route: 048
  18. METHYLCOBALAMIN [Concomitant]
     Active Substance: METHYLCOBALAMIN
     Route: 048
  19. HERBALS [Concomitant]
     Active Substance: HERBALS
     Route: 048
  20. CLOSTRIDIUM BUTYRICUM SPORES STRAIN M-55 [Concomitant]
     Active Substance: CLOSTRIDIUM BUTYRICUM SPORES STRAIN M-55
     Route: 048
  21. DIMETHICONE [Concomitant]
     Active Substance: DIMETHICONE
     Route: 048
  22. SYMBICORT [Concomitant]
     Active Substance: BUDESONIDE\FORMOTEROL FUMARATE DIHYDRATE
     Route: 055
  23. MEXILETINE HYDROCHLORIDE [Concomitant]
     Active Substance: MEXILETINE HYDROCHLORIDE
     Route: 048
  24. TIZANIDINE [Concomitant]
     Active Substance: TIZANIDINE
     Route: 048
  25. MOSAPRIDE CITRATE DIHYDRATE [Concomitant]
     Active Substance: MOSAPRIDE CITRATE DIHYDRATE
  26. NEXIUM [Concomitant]
     Active Substance: ESOMEPRAZOLE MAGNESIUM
     Route: 048
  27. THEOPHYLLINE ANHYDROUS [Concomitant]
     Active Substance: THEOPHYLLINE ANHYDROUS
     Route: 048
  28. MONTELUKAST [Concomitant]
     Active Substance: MONTELUKAST SODIUM
     Route: 048

REACTIONS (1)
  - Neuroleptic malignant syndrome [Unknown]
